FAERS Safety Report 6811221-2 (Version None)
Quarter: 2010Q2

REPORT INFORMATION
  Report Type: 
  Country: None (occurrence: None)
  Receive Date: 20100630
  Receipt Date: 20090930
  Transmission Date: 20101027
  Serious: No
  Sender: FDA-Public Use
  Company Number: US-AMGEN-KDL367550

PATIENT
  Sex: Female
  Weight: 65.8 kg

DRUGS (12)
  1. PROCRIT [Suspect]
     Indication: RENAL FAILURE CHRONIC
     Dates: start: 20070101
  2. ASPIRIN [Concomitant]
  3. UNSPECIFIED MEDICATION [Concomitant]
  4. UNSPECIFIED TOPICAL PRODUCT [Concomitant]
  5. PAXIL [Concomitant]
  6. CALCITRIOL [Concomitant]
  7. NEXIUM [Concomitant]
  8. COZAAR [Concomitant]
  9. LASIX [Concomitant]
  10. CRESTOR [Concomitant]
  11. INSULIN [Concomitant]
  12. LANTUS [Concomitant]

REACTIONS (1)
  - EXPIRED DRUG ADMINISTERED [None]
